FAERS Safety Report 8922521 (Version 1)
Quarter: 2012Q4

REPORT INFORMATION
  Report Type: 
  Country: DE (occurrence: DE)
  Receive Date: 20121126
  Receipt Date: 20121126
  Transmission Date: 20130627
  Serious: Yes (Hospitalization)
  Sender: FDA-Public Use
  Company Number: DE-AMGEN-DEUSP2012071239

PATIENT
  Age: 46 Year
  Sex: Male
  Weight: 105 kg

DRUGS (4)
  1. NPLATE [Suspect]
     Indication: PRODUCT USED FOR UNKNOWN INDICATION
     Dosage: 100 mug, one time dose
     Route: 042
     Dates: start: 20121031, end: 20121031
  2. ISCOVER [Concomitant]
     Dosage: 75 mg, UNK
  3. ASS [Concomitant]
     Dosage: 100 mg, UNK
  4. KIOVIG [Concomitant]
     Dosage: UNK
     Dates: start: 20121025

REACTIONS (1)
  - Incorrect dose administered [Recovered/Resolved]
